FAERS Safety Report 8671593 (Version 2)
Quarter: 2013Q4

REPORT INFORMATION
  Report Type: Report from Study
  Country: IT (occurrence: IT)
  Receive Date: 20120718
  Receipt Date: 20131031
  Transmission Date: 20140711
  Serious: Yes (Hospitalization)
  Sender: FDA-Public Use
  Company Number: IT-009507513-1203USA01989

PATIENT
  Age: 68 Year
  Sex: Female
  Weight: 90 kg

DRUGS (7)
  1. EZETIMIBE (+) SIMVASTATIN [Suspect]
     Dosage: 10-40
     Route: 048
     Dates: start: 20090923, end: 20111204
  2. BISOPROLOL [Concomitant]
     Dosage: 2.5 MG, QD
     Route: 048
     Dates: start: 20090927
  3. PANTOPRAZOLE [Concomitant]
     Dosage: 40 MG, QD
     Route: 048
     Dates: start: 20100930
  4. BARNIDIPINE [Concomitant]
     Dosage: 10 MG, QD
     Route: 048
     Dates: start: 20110530, end: 20120223
  5. ASPIRIN [Concomitant]
     Dosage: 100 MG, QD
     Route: 048
     Dates: start: 20090927
  6. HYDROCHLOROTHIAZIDE (+) VALSARTAN [Concomitant]
     Dosage: 320/12.5
     Route: 048
     Dates: start: 20100526, end: 20120222
  7. FUROSEMIDE [Concomitant]
     Dosage: 25 MG, QD
     Route: 048
     Dates: start: 20090927

REACTIONS (1)
  - Bile duct stone [Not Recovered/Not Resolved]
